FAERS Safety Report 8576444 (Version 7)
Quarter: 2013Q1

REPORT INFORMATION
  Report Type: Report from Study
  Country: US (occurrence: US)
  Receive Date: 20120523
  Receipt Date: 20130308
  Transmission Date: 20140127
  Serious: Yes (Other)
  Sender: FDA-Public Use
  Company Number: US-TEVA-339155USA

PATIENT
  Age: 18 Year
  Sex: Female

DRUGS (1)
  1. CLARAVIS [Suspect]
     Dosage: 60 MILLIGRAM DAILY; 3 CAPSULES TAKEN
     Route: 048
     Dates: start: 2012, end: 2012

REACTIONS (1)
  - Unintended pregnancy [Unknown]
